FAERS Safety Report 5595591-1 (Version None)
Quarter: 2008Q1

REPORT INFORMATION
  Report Type: 
  Country: None (occurrence: None)
  Receive Date: 20080118
  Receipt Date: 20080111
  Transmission Date: 20080703
  Serious: Yes (Other)
  Sender: FDA-Public Use
  Company Number: PHEH2008US00773

PATIENT
  Age: 13 Year

DRUGS (1)
  1. EXJADE [Suspect]
     Indication: THALASSAEMIA BETA
     Dosage: 23 MG/KG/DAY
     Route: 048

REACTIONS (2)
  - FLANK PAIN [None]
  - NEPHROLITHIASIS [None]
